FAERS Safety Report 14339809 (Version 1)
Quarter: 2017Q4

REPORT INFORMATION
  Report Type: Spontaneous
  Country: FR (occurrence: FR)
  Receive Date: 20171230
  Receipt Date: 20171230
  Transmission Date: 20180321
  Serious: Yes (Other)
  Sender: FDA-Public Use
  Company Number: FR-MYLANLABS-2017M1082883

PATIENT
  Age: 71 Year
  Sex: Male
  Weight: 65 kg

DRUGS (7)
  1. OLANZAPINE MYLAN [Suspect]
     Active Substance: OLANZAPINE
     Indication: ABNORMAL BEHAVIOUR
     Dosage: 1 DF, QD
     Route: 048
     Dates: start: 20170509, end: 20170531
  2. PANTOPRAZOLE ZENTIVA 20 MG, COMPRIM? GASTRO-R?SISTANT [Concomitant]
     Indication: PRODUCT USED FOR UNKNOWN INDICATION
  3. MEMANTINE                          /00646902/ [Concomitant]
     Active Substance: MEMANTINE HYDROCHLORIDE
     Indication: PRODUCT USED FOR UNKNOWN INDICATION
  4. RISPERIDONE ZENTIVA [Concomitant]
     Indication: PRODUCT USED FOR UNKNOWN INDICATION
  5. OLANZAPINE ZENTIVA [Suspect]
     Active Substance: OLANZAPINE
     Indication: ABNORMAL BEHAVIOUR
     Dosage: 1 DF, QD
     Route: 048
     Dates: start: 20170601, end: 20170821
  6. SERESTA 10 MG, COMPRIM? [Concomitant]
     Indication: PRODUCT USED FOR UNKNOWN INDICATION
  7. MOVICOL [Concomitant]
     Active Substance: POLYETHYLENE GLYCOL 3350\POTASSIUM CHLORIDE\SODIUM BICARBONATE\SODIUM CHLORIDE
     Indication: PRODUCT USED FOR UNKNOWN INDICATION

REACTIONS (1)
  - Camptocormia [Recovering/Resolving]

NARRATIVE: CASE EVENT DATE: 20170813
